FAERS Safety Report 7288840-5 (Version None)
Quarter: 2011Q1

REPORT INFORMATION
  Report Type: 
  Country: None (occurrence: None)
  Receive Date: 20110201
  Receipt Date: 20110115
  Transmission Date: 20110831
  Serious: Yes (Other)
  Sender: FDA-Public Use
  Company Number: 2011AP000064

PATIENT
  Age: 28 Year
  Sex: Female

DRUGS (3)
  1. TACROLIMUS [Concomitant]
  2. MYCOPHENOLATE MOFETIL [Suspect]
     Indication: IMMUNOSUPPRESSION
     Dosage: 1500 MG, BID;
  3. PREDNISONE [Concomitant]

REACTIONS (3)
  - COLITIS [None]
  - METABOLIC ACIDOSIS [None]
  - LEUKOPENIA [None]
